FAERS Safety Report 7244276 (Version 2)
Quarter: 2013Q3

REPORT INFORMATION
  Report Type: Spontaneous
  Country: US (occurrence: US)
  Receive Date: 20100113
  Receipt Date: 20130916
  Transmission Date: 20140515
  Serious: Yes (Death)
  Sender: FDA-Public Use
  Company Number: US-BAYER-201010878NA

PATIENT
  Age: 42 Year
  Sex: Female
  Weight: 94.09 kg

DRUGS (2)
  1. YAZ [Suspect]
     Indication: MENSTRUAL CYCLE MANAGEMENT
     Dosage: 1 DF (DAILY DOSE), QD, ORAL
     Route: 048
     Dates: start: 20070329, end: 20091221
  2. YAZ [Suspect]
     Indication: CONTRACEPTION

REACTIONS (1)
  - Pulmonary embolism [Fatal]
